FAERS Safety Report 6278343-9 (Version None)
Quarter: 2009Q3

REPORT INFORMATION
  Report Type: 
  Country: None (occurrence: None)
  Receive Date: 20090720
  Receipt Date: 20090720
  Transmission Date: 20100115
  Serious: Yes (Other)
  Sender: FDA-Public Use
  Company Number: None

PATIENT
  Age: 53 Year
  Sex: Female
  Weight: 59.8748 kg

DRUGS (2)
  1. CYMBALTA [Suspect]
     Indication: MIGRAINE
     Dates: start: 20080501, end: 20090719
  2. CYMBALTA [Suspect]
     Indication: NECK PAIN
     Dates: start: 20080501, end: 20090719

REACTIONS (13)
  - ABNORMAL DREAMS [None]
  - ANGER [None]
  - ANXIETY [None]
  - ARRHYTHMIA [None]
  - ATRIAL FIBRILLATION [None]
  - FATIGUE [None]
  - INFLUENZA LIKE ILLNESS [None]
  - LYMPHADENOPATHY [None]
  - MOOD SWINGS [None]
  - NIGHT SWEATS [None]
  - ORTHOSTATIC HYPOTENSION [None]
  - VERTIGO [None]
  - WITHDRAWAL SYNDROME [None]
